FAERS Safety Report 23794013 (Version 2)
Quarter: 2024Q4

REPORT INFORMATION
  Report Type: Spontaneous
  Country: US (occurrence: US)
  Receive Date: 20240429
  Receipt Date: 20241013
  Transmission Date: 20250114
  Serious: No
  Sender: SANOFI AVENTIS
  Company Number: US-SA-2024SA125346

PATIENT
  Age: 13 Year
  Sex: Male
  Weight: 58.96 kg

DRUGS (2)
  1. ALPROLIX [Suspect]
     Active Substance: EFTRENONACOG ALFA
     Indication: Factor IX deficiency
     Dosage: 3700 U, QW
     Route: 042
     Dates: start: 202210
  2. ALPROLIX [Suspect]
     Active Substance: EFTRENONACOG ALFA
     Indication: Factor IX deficiency
     Dosage: 3700 U, QW
     Route: 042
     Dates: start: 202210

REACTIONS (4)
  - Haemorrhage [Unknown]
  - Contusion [Unknown]
  - Weight increased [Unknown]
  - Spontaneous haemorrhage [Unknown]

NARRATIVE: CASE EVENT DATE: 20240327
